FAERS Safety Report 6942086-6 (Version None)
Quarter: 2010Q3

REPORT INFORMATION
  Report Type: 
  Country: None (occurrence: None)
  Receive Date: 20100823
  Receipt Date: 20100719
  Transmission Date: 20110219
  Serious: Yes (Other)
  Sender: FDA-Public Use
  Company Number: 644327

PATIENT
  Age: 67 Year
  Sex: Female

DRUGS (9)
  1. HEPARIN SODIUM INJECTION [Suspect]
     Indication: PRODUCT USED FOR UNKNOWN INDICATION
     Dosage: INTRAVENOUS
     Route: 042
  2. AMLODIPINE [Concomitant]
  3. DOCUSATE SODIUM [Concomitant]
  4. LABETALOL HYDROCHLORIDE [Concomitant]
  5. LIPITOR [Concomitant]
  6. RAMIPRIL [Concomitant]
  7. NPH INSULIN [Concomitant]
  8. REGULAR INSULIN [Concomitant]
  9. PIPERACILLIN W/TAZOBACTAM [Concomitant]

REACTIONS (1)
  - RETROPERITONEAL HAEMORRHAGE [None]
